FAERS Safety Report 24024426 (Version 1)
Quarter: 2024Q2

REPORT INFORMATION
  Report Type: Report from Study
  Country: BE (occurrence: BE)
  Receive Date: 20240628
  Receipt Date: 20240628
  Transmission Date: 20240716
  Serious: No
  Sender: FDA-Public Use
  Company Number: BE-ROCHE-3180303

PATIENT
  Age: 69 Year
  Sex: Male
  Weight: 80.6 kg

DRUGS (10)
  1. ALECTINIB [Suspect]
     Active Substance: ALECTINIB
     Indication: Non-small cell lung cancer
     Route: 048
     Dates: start: 20210805
  2. COVERAM [Concomitant]
     Active Substance: AMLODIPINE\PERINDOPRIL
     Indication: Hypertension
     Route: 048
  3. RIVOTRIL [Concomitant]
     Active Substance: CLONAZEPAM
     Indication: Insomnia
     Dosage: 5 OTHER
     Route: 048
  4. ALLOPURINOL [Concomitant]
     Active Substance: ALLOPURINOL
     Indication: Hyperuricaemia
     Route: 048
  5. BUMETANIDE [Concomitant]
     Active Substance: BUMETANIDE
     Indication: Oedema
     Route: 048
     Dates: start: 20220131
  6. DAFALGAN [Concomitant]
     Active Substance: ACETAMINOPHEN
     Indication: Chest pain
     Dosage: FREQUENCY TEXT:PRN
     Route: 048
     Dates: start: 20220131
  7. LORLATINIB [Concomitant]
     Active Substance: LORLATINIB
     Dates: start: 20220630
  8. AMOXICILLIN\CLAVULANATE POTASSIUM [Concomitant]
     Active Substance: AMOXICILLIN\CLAVULANATE POTASSIUM
     Dosage: 1 CAPSULE, FOR BRONCHIAL INFECTION
     Route: 048
     Dates: start: 202209, end: 202209
  9. AUGMENTIN [Concomitant]
     Active Substance: AMOXICILLIN\CLAVULANATE POTASSIUM
     Indication: Pyrexia
     Dosage: LEFT OTITTIS EXTERNA
     Route: 048
     Dates: start: 20221217, end: 20221223
  10. AUGMENTIN [Concomitant]
     Active Substance: AMOXICILLIN\CLAVULANATE POTASSIUM
     Route: 048
     Dates: start: 20230226, end: 20230305

REACTIONS (1)
  - Anxiety [Not Recovered/Not Resolved]

NARRATIVE: CASE EVENT DATE: 20220516
